FAERS Safety Report 23472948 (Version 4)
Quarter: 2024Q3

REPORT INFORMATION
  Report Type: Report from Study
  Country: US (occurrence: US)
  Receive Date: 20240203
  Receipt Date: 20240731
  Transmission Date: 20241016
  Serious: Yes (Hospitalization)
  Sender: ABBVIE
  Company Number: US-ABBVIE-5612361

PATIENT
  Age: 72 Year
  Sex: Male

DRUGS (2)
  1. SKYRIZI [Suspect]
     Active Substance: RISANKIZUMAB-RZAA
     Indication: Psoriasis
     Route: 058
     Dates: start: 20221213
  2. SKYRIZI [Suspect]
     Active Substance: RISANKIZUMAB-RZAA
     Route: 058
     Dates: start: 20230829

REACTIONS (4)
  - Pain [Recovered/Resolved]
  - Nasal congestion [Recovering/Resolving]
  - Device power source issue [Recovered/Resolved]
  - Hypogeusia [Recovering/Resolving]

NARRATIVE: CASE EVENT DATE: 20240125
